FAERS Safety Report 6479664-7 (Version None)
Quarter: 2009Q4

REPORT INFORMATION
  Report Type: 
  Country: None (occurrence: None)
  Receive Date: 20091202
  Receipt Date: 20091117
  Transmission Date: 20100525
  Serious: Yes (Hospitalization)
  Sender: FDA-Public Use
  Company Number: AUR-APL-2009-01420

PATIENT
  Age: 33 Year
  Sex: Male

DRUGS (2)
  1. SERTRALINE HCL [Suspect]
     Indication: SCHIZOPHRENIA
     Dosage: 50MG, DAILY
  2. RISPERIDONE [Suspect]
     Indication: SCHIZOPHRENIA
     Dosage: 2MG, DAILY

REACTIONS (7)
  - COUGH [None]
  - INTERSTITIAL LUNG DISEASE [None]
  - ORGANISING PNEUMONIA [None]
  - PNEUMOTHORAX [None]
  - PULMONARY EOSINOPHILIA [None]
  - PULMONARY FIBROSIS [None]
  - RESPIRATORY FAILURE [None]
